FAERS Safety Report 7580467-0 (Version None)
Quarter: 2011Q2

REPORT INFORMATION
  Report Type: 
  Country: None (occurrence: None)
  Receive Date: 20110629
  Receipt Date: 20110608
  Transmission Date: 20111010
  Serious: Yes (Congenital Anomaly)
  Sender: FDA-Public Use
  Company Number: A0921142A

PATIENT
  Sex: Female
  Weight: 3.1 kg

DRUGS (1)
  1. PAXIL [Suspect]
     Dosage: 30MG PER DAY
     Route: 064
     Dates: start: 20010205, end: 20030825

REACTIONS (5)
  - ASTHMA [None]
  - DRUG EXPOSURE DURING PREGNANCY [None]
  - CARDIAC MURMUR [None]
  - BRONCHIAL HYPERREACTIVITY [None]
  - ANXIETY DISORDER [None]
